FAERS Safety Report 10785029 (Version 1)
Quarter: 2015Q1

REPORT INFORMATION
  Report Type: Spontaneous
  Country: CN (occurrence: None)
  Receive Date: 20150209
  Receipt Date: 20150209
  Transmission Date: 20150721
  Serious: Yes (Other)
  Sender: FDA-Public Use
  Company Number: NSR_01825_2015

PATIENT
  Age: 44 Year
  Sex: Female

DRUGS (1)
  1. PROPRANOLOL [Suspect]
     Active Substance: PROPRANOLOL\PROPRANOLOL HYDROCHLORIDE
     Indication: PRODUCT USED FOR UNKNOWN INDICATION
     Dosage: (500 MG, [NOT THE PRESCRIBED AMOUNT])

REACTIONS (5)
  - Brugada syndrome [None]
  - Seizure [None]
  - Intentional overdose [None]
  - Sinus bradycardia [None]
  - Hypotension [None]
